FAERS Safety Report 6386442-6 (Version None)
Quarter: 2009Q4

REPORT INFORMATION
  Report Type: 
  Country: None (occurrence: None)
  Receive Date: 20091002
  Receipt Date: 20090504
  Transmission Date: 20100525
  Serious: Yes (Other)
  Sender: FDA-Public Use
  Company Number: US-ASTRAZENECA-2009UW11344

PATIENT
  Sex: Male

DRUGS (1)
  1. ARIMIDEX [Suspect]
     Indication: BLOOD OESTROGEN INCREASED
     Dosage: ON AND OFF
     Route: 048
     Dates: start: 20080601, end: 20090301

REACTIONS (2)
  - EMBOLISM [None]
  - PULMONARY EMBOLISM [None]
